FAERS Safety Report 9785357 (Version 1)
Quarter: 2013Q4

REPORT INFORMATION
  Report Type: Spontaneous
  Country: IN (occurrence: IN)
  Receive Date: 20131227
  Receipt Date: 20131227
  Transmission Date: 20140711
  Serious: Yes (Death)
  Sender: FDA-Public Use
  Company Number: IN-JNJFOC-20131212499

PATIENT
  Sex: 0

DRUGS (6)
  1. DOXORUBICIN [Suspect]
     Indication: EWING^S SARCOMA
     Route: 042
  2. VINCRISTINE [Suspect]
     Indication: EWING^S SARCOMA
     Route: 065
  3. CISPLATIN [Suspect]
     Indication: EWING^S SARCOMA
     Route: 065
  4. IFOSPHAMIDE [Suspect]
     Indication: EWING^S SARCOMA
     Route: 065
  5. ETOPOSIDE [Suspect]
     Indication: EWING^S SARCOMA
     Route: 065
  6. RADIOTHERAPY [Suspect]
     Indication: EWING^S SARCOMA
     Route: 065

REACTIONS (2)
  - Death [Fatal]
  - Off label use [Unknown]
